FAERS Safety Report 21379330 (Version 1)
Quarter: 2022Q3

REPORT INFORMATION
  Report Type: Report from Study
  Country: HU (occurrence: HU)
  Receive Date: 20220927
  Receipt Date: 20220927
  Transmission Date: 20221027
  Serious: Yes (Other)
  Sender: FDA-Public Use
  Company Number: HU-NOVARTISPH-NVSC2022HU216334

PATIENT
  Sex: Male

DRUGS (3)
  1. ASCIMINIB [Suspect]
     Active Substance: ASCIMINIB
     Indication: Chronic myeloid leukaemia
     Dosage: 400 MG
     Route: 065
     Dates: start: 20220623
  2. ASCIMINIB [Suspect]
     Active Substance: ASCIMINIB
     Dosage: 200 MG, BID
     Route: 065
  3. ASCIMINIB [Suspect]
     Active Substance: ASCIMINIB
     Dosage: 80 MG (2X 80 MG)
     Route: 065

REACTIONS (3)
  - Ischaemic stroke [Recovered/Resolved]
  - Diarrhoea [Unknown]
  - Vomiting [Unknown]

NARRATIVE: CASE EVENT DATE: 20220101
